FAERS Safety Report 20040466 (Version 1)
Quarter: 2021Q4

REPORT INFORMATION
  Report Type: Spontaneous
  Country: US (occurrence: None)
  Receive Date: 20211106
  Receipt Date: 20211106
  Transmission Date: 20220303
  Serious: Yes (Other)
  Sender: FDA-Public Use
  Company Number: None

PATIENT
  Age: 51 Year
  Sex: Female
  Weight: 114.3 kg

DRUGS (22)
  1. HIZENTRA [Suspect]
     Active Substance: HUMAN IMMUNOGLOBULIN G
     Indication: Immunodeficiency common variable
     Dosage: FREQUENCY : EVERY OTHER WEEK;?
     Route: 058
  2. BELSOMRA [Concomitant]
     Active Substance: SUVOREXANT
  3. Biotin 5000 mcg [Concomitant]
  4. CEVIMELINE [Concomitant]
     Active Substance: CEVIMELINE
  5. CYCLOBENZAPRINE HYDROCHLORIDE [Concomitant]
     Active Substance: CYCLOBENZAPRINE HYDROCHLORIDE
  6. Dapsone 5% [Concomitant]
  7. Dexamethasone 0.75 mg [Concomitant]
  8. DEXILANT [Concomitant]
     Active Substance: DEXLANSOPRAZOLE
  9. EMGALITY [Concomitant]
     Active Substance: GALCANEZUMAB-GNLM
  10. Entrestro 24-26 mg [Concomitant]
  11. Ketorlac tromethamine 60 mg/2 mL [Concomitant]
  12. Lorazepam 2 mg/mL [Concomitant]
  13. NADOLOL [Concomitant]
     Active Substance: NADOLOL
  14. Nurtec 75 mg [Concomitant]
  15. Rituxan 1000 mg [Concomitant]
  16. Sumatriptan 6 mg/0.5mL [Concomitant]
  17. TRETINOIN [Concomitant]
     Active Substance: TRETINOIN
  18. UBRELVY [Concomitant]
     Active Substance: UBROGEPANT
  19. Vitamin D 50 mcg [Concomitant]
  20. Vitamin E 400 unit [Concomitant]
  21. ROSUVASTATIN [Concomitant]
     Active Substance: ROSUVASTATIN
  22. Lidocaine/Prilocaine Cream 2.5% [Concomitant]

REACTIONS (8)
  - Injection site pain [None]
  - Injection site pruritus [None]
  - Urticaria [None]
  - Injection site erythema [None]
  - Drug resistance [None]
  - Product quality issue [None]
  - Recalled product [None]
  - Injection site reaction [None]

NARRATIVE: CASE EVENT DATE: 20211104
